FAERS Safety Report 7667101-6 (Version None)
Quarter: 2011Q3

REPORT INFORMATION
  Report Type: 
  Country: None (occurrence: None)
  Receive Date: 20110806
  Receipt Date: 20110303
  Transmission Date: 20111222
  Serious: No
  Sender: FDA-Public Use
  Company Number: US-ABBOTT-11P-163-0709763-00

PATIENT
  Sex: Male
  Weight: 97.61 kg

DRUGS (5)
  1. FLECAINIDE ACETATE [Concomitant]
     Indication: CARDIAC DISORDER
  2. METOPROLOL TARTRATE [Concomitant]
     Indication: CARDIAC DISORDER
  3. PROTONIX [Concomitant]
     Indication: GASTROOESOPHAGEAL REFLUX DISEASE
  4. CRESTOR [Concomitant]
     Indication: BLOOD CHOLESTEROL
     Dates: start: 20110222
  5. NIASPAN [Suspect]
     Indication: BLOOD CHOLESTEROL INCREASED
     Dates: start: 20110222, end: 20110222

REACTIONS (7)
  - DYSPHAGIA [None]
  - INSOMNIA [None]
  - ERYTHEMA [None]
  - SKIN BURNING SENSATION [None]
  - FATIGUE [None]
  - SWOLLEN TONGUE [None]
  - OEDEMA PERIPHERAL [None]
